FAERS Safety Report 4281087-6 (Version None)
Quarter: 2004Q1

REPORT INFORMATION
  Report Type: 
  Country: None (occurrence: None)
  Receive Date: 20040127
  Receipt Date: 20040113
  Transmission Date: 20041129
  Serious: Yes (Life-Threatening, Hospitalization)
  Sender: FDA-Public Use
  Company Number: 2003-BP-08791NB (2)

PATIENT
  Age: 78 Year
  Sex: Female

DRUGS (7)
  1. MOBIC [Suspect]
     Indication: BACK PAIN
     Dosage: 10 MG PO
     Route: 048
     Dates: start: 20030827, end: 20031005
  2. VOLTAREN [Suspect]
     Dates: start: 20001204, end: 20031015
  3. GLAKAY [Concomitant]
  4. ONEALFA [Concomitant]
  5. LIPLE [Concomitant]
  6. NEUTROPIN [Concomitant]
  7. ELCITONIN (ELCATONIN) [Concomitant]

REACTIONS (3)
  - DUODENAL ULCER PERFORATION [None]
  - HAEMATOCRIT DECREASED [None]
  - HAEMOGLOBIN DECREASED [None]
